FAERS Safety Report 4943543-4 (Version None)
Quarter: 2006Q1

REPORT INFORMATION
  Report Type: 
  Country: None (occurrence: None)
  Receive Date: 20060309
  Receipt Date: 20060223
  Transmission Date: 20060701
  Serious: Yes (Hospitalization)
  Sender: FDA-Public Use
  Company Number: 2006BI001217

PATIENT
  Age: 34 Year
  Sex: Male
  Weight: 122.4712 kg

DRUGS (17)
  1. AVONEX [Suspect]
     Indication: MULTIPLE SCLEROSIS
     Dosage: 30 UG; QW; IM
     Route: 030
     Dates: start: 20020301, end: 20030101
  2. AVONEX [Suspect]
     Indication: MULTIPLE SCLEROSIS
     Dosage: 30 UG; QW; IM
     Route: 030
     Dates: start: 20030101
  3. PHENYTOIN [Concomitant]
  4. ETODOLAC [Concomitant]
  5. GABAPENTIN [Concomitant]
  6. PRAMIPEXOLE DIHYDROCHLORIDE [Concomitant]
  7. TOPIRAMATE [Concomitant]
  8. LORATADINE [Concomitant]
  9. BACLOFEN [Concomitant]
  10. OMEPRAZOLE [Concomitant]
  11. NIFEDIPINE [Concomitant]
  12. HYDROCHLOROTHIAZIDE [Concomitant]
  13. ENALAPRIL MALEATE [Concomitant]
  14. FLUTICASONE W/SALMETEROL [Concomitant]
  15. COMBIVENT [Concomitant]
  16. DOCUSATE [Concomitant]
  17. MODAFINIL [Concomitant]

REACTIONS (16)
  - ASTHMA [None]
  - CHILLS [None]
  - CONDITION AGGRAVATED [None]
  - DEPRESSION [None]
  - DYSURIA [None]
  - FEELING HOT [None]
  - HYPOACUSIS [None]
  - IMMUNE SYSTEM DISORDER [None]
  - MULTIPLE SCLEROSIS [None]
  - MULTIPLE SCLEROSIS RELAPSE [None]
  - MUSCLE SPASMS [None]
  - NEUTRALISING ANTIBODIES NEGATIVE [None]
  - POLLAKIURIA [None]
  - PYREXIA [None]
  - STOMATITIS [None]
  - VISUAL ACUITY REDUCED [None]
